FAERS Safety Report 6469312-4 (Version None)
Quarter: 2009Q4

REPORT INFORMATION
  Report Type: 
  Country: None (occurrence: None)
  Receive Date: 20091203
  Receipt Date: 20071004
  Transmission Date: 20100525
  Serious: Yes (Hospitalization)
  Sender: FDA-Public Use
  Company Number: US-ELI_LILLY_AND_COMPANY-US200707005294

PATIENT
  Sex: Male
  Weight: 102.4 kg

DRUGS (6)
  1. ZYPREXA [Suspect]
     Dosage: 2.5 MG, UNK
     Dates: start: 19990101
  2. ZYPREXA [Suspect]
     Dosage: 5 MG, UNK
  3. ABILIFY [Concomitant]
     Dates: start: 20041110
  4. RISPERDAL [Concomitant]
     Dates: start: 20051101
  5. GEODON [Concomitant]
     Dates: start: 20051111
  6. ZOLOFT [Concomitant]
     Dates: start: 19961101

REACTIONS (8)
  - BLOOD CHOLESTEROL INCREASED [None]
  - BLOOD TRIGLYCERIDES INCREASED [None]
  - CARDIAC OPERATION [None]
  - HYPERGLYCAEMIA [None]
  - HYPERTENSION [None]
  - MYOCARDIAL INFARCTION [None]
  - TYPE 2 DIABETES MELLITUS [None]
  - WEIGHT INCREASED [None]
